FAERS Safety Report 5528091-5 (Version None)
Quarter: 2007Q4

REPORT INFORMATION
  Report Type: 
  Country: None (occurrence: None)
  Receive Date: 20071121
  Receipt Date: 20071107
  Transmission Date: 20080405
  Serious: Yes (Hospitalization)
  Sender: FDA-Public Use
  Company Number: S07-UKI-05776-01

PATIENT
  Age: 84 Year
  Sex: Female

DRUGS (16)
  1. CITALOPRAM HYDROBROMIDE [Suspect]
     Indication: DEPRESSION
     Dosage: 10 MG QD PO
     Route: 048
     Dates: start: 20070924, end: 20071019
  2. LANSOPRAZOLE [Concomitant]
  3. SUDOCREM [Concomitant]
  4. ASPIRIN [Concomitant]
  5. MOVICOL (NULYTELY) [Concomitant]
  6. TOPAL [Concomitant]
  7. IBUPROFEN [Concomitant]
  8. PARACETAMOL [Concomitant]
  9. CHLOROPHENAMINE [Concomitant]
  10. TEMAZEPAM [Concomitant]
  11. SIMVASTATIN [Concomitant]
  12. SALIVIX [Concomitant]
  13. PERNATON (PERNA CALICULATA EXTRACT) [Concomitant]
  14. EURAX [Concomitant]
  15. CLOTRIMAZOLE [Concomitant]
  16. LACTULOSE [Concomitant]

REACTIONS (2)
  - CHOREA [None]
  - DRUG INEFFECTIVE [None]
